FAERS Safety Report 15240697 (Version 1)
Quarter: 2018Q3

REPORT INFORMATION
  Report Type: Report from Study
  Country: US (occurrence: US)
  Receive Date: 20180804
  Receipt Date: 20180804
  Transmission Date: 20181010
  Serious: Yes (Other)
  Sender: FDA-Public Use
  Company Number: US-BAYER-2017-149320

PATIENT
  Age: 60 Year
  Sex: Male

DRUGS (3)
  1. NEXAVAR [Suspect]
     Active Substance: SORAFENIB
     Indication: GASTROINTESTINAL STROMAL CANCER
     Dosage: 800 MG DAILY
     Route: 048
     Dates: start: 2017
  2. NEXAVAR [Suspect]
     Active Substance: SORAFENIB
     Indication: GASTROINTESTINAL STROMAL CANCER
     Dosage: 800 MG DAILY
     Route: 048
     Dates: start: 2017
  3. NEXAVAR [Suspect]
     Active Substance: SORAFENIB
     Indication: GASTROINTESTINAL STROMAL CANCER
     Dosage: 800 MG DAILY
     Route: 048
     Dates: start: 20170726, end: 2017

REACTIONS (12)
  - Abdominal pain upper [None]
  - Product use in unapproved indication [None]
  - Hypersensitivity [None]
  - Abdominal pain [None]
  - Renal failure [Recovered/Resolved]
  - Adverse drug reaction [None]
  - Peripheral swelling [None]
  - Off label use [None]
  - Testicular swelling [None]
  - Abdominal distension [None]
  - Hepatic failure [Recovered/Resolved]
  - Oropharyngeal pain [None]

NARRATIVE: CASE EVENT DATE: 201708
